APPROVED DRUG PRODUCT: CHOLEDYL SA
Active Ingredient: OXTRIPHYLLINE
Strength: 400MG
Dosage Form/Route: TABLET, EXTENDED RELEASE;ORAL
Application: A087863 | Product #001
Applicant: WARNER CHILCOTT CO LLC
Approved: May 24, 1983 | RLD: No | RS: No | Type: DISCN